FAERS Safety Report 6040997-X (Version None)
Quarter: 2009Q1

REPORT INFORMATION
  Report Type: 
  Country: None (occurrence: None)
  Receive Date: 20090116
  Receipt Date: 20080724
  Transmission Date: 20090719
  Serious: Yes (Hospitalization)
  Sender: FDA-Public Use
  Company Number: US-BRISTOL-MYERS SQUIBB COMPANY-14274674

PATIENT
  Age: 14 Year
  Sex: Male
  Weight: 102 kg

DRUGS (4)
  1. ABILIFY [Suspect]
     Indication: AUTISM
     Dosage: 10MG/D ON 17JAN08,INCREASED TO 15MG/D IN APR08,AGAIN INCREASED TO 20MG/D AND THEN 25MG/D ON 23JUL08
     Dates: start: 20080117
  2. ABILIFY [Suspect]
     Indication: ATTENTION DEFICIT/HYPERACTIVITY DISORDER
     Dosage: 10MG/D ON 17JAN08,INCREASED TO 15MG/D IN APR08,AGAIN INCREASED TO 20MG/D AND THEN 25MG/D ON 23JUL08
     Dates: start: 20080117
  3. ABILIFY [Suspect]
     Indication: AGGRESSION
     Dosage: 10MG/D ON 17JAN08,INCREASED TO 15MG/D IN APR08,AGAIN INCREASED TO 20MG/D AND THEN 25MG/D ON 23JUL08
     Dates: start: 20080117
  4. ABILIFY [Suspect]
     Indication: MILD MENTAL RETARDATION
     Dosage: 10MG/D ON 17JAN08,INCREASED TO 15MG/D IN APR08,AGAIN INCREASED TO 20MG/D AND THEN 25MG/D ON 23JUL08
     Dates: start: 20080117

REACTIONS (4)
  - AGGRESSION [None]
  - HEPATIC ENZYME INCREASED [None]
  - INCREASED APPETITE [None]
  - WEIGHT INCREASED [None]
